FAERS Safety Report 10248750 (Version 1)
Quarter: 2014Q2

REPORT INFORMATION
  Report Type: Spontaneous
  Country: CH (occurrence: None)
  Receive Date: 20140618
  Receipt Date: 20140618
  Transmission Date: 20141212
  Serious: Yes (Hospitalization)
  Sender: FDA-Public Use
  Company Number: 2014060043

PATIENT
  Age: 73 Year
  Sex: Female

DRUGS (3)
  1. TOREM [Suspect]
     Route: 048
  2. COSAAR PLUS (HYDROCHLOROTHIAZIDE, LOSARTAN POTASSIUM FILM-COATED TABLET) [Suspect]
     Route: 048
     Dates: start: 20140323
  3. ALDACTONE (SPIRONOLACTONE) [Suspect]
     Route: 048
     Dates: start: 20140307, end: 20140323

REACTIONS (5)
  - Hypotension [None]
  - Renal failure acute [None]
  - Hypovolaemia [None]
  - Dehydration [None]
  - Hyperkalaemia [None]
